FAERS Safety Report 5272141-0 (Version None)
Quarter: 2007Q1

REPORT INFORMATION
  Report Type: 
  Country: None (occurrence: None)
  Receive Date: 20070322
  Receipt Date: 20070319
  Transmission Date: 20070707
  Serious: Yes (Hospitalization)
  Sender: FDA-Public Use
  Company Number: 2007UW02188

PATIENT
  Age: 72 Year
  Sex: Male
  Weight: 98.6 kg

DRUGS (16)
  1. CASODEX [Suspect]
     Indication: PROSTATE CANCER
     Route: 048
     Dates: start: 20061117
  2. TAXOL [Suspect]
     Indication: PROSTATE CANCER
     Dosage: CYCLE 4
  3. DEXAMETHASONE [Concomitant]
  4. PREDNISONE [Concomitant]
  5. PROSCAR [Concomitant]
  6. LHRH-A [Concomitant]
     Dosage: EVERY 6 MONTHS
  7. SOTALOL HYDROCHLORIDE [Concomitant]
  8. HYTRIN [Concomitant]
  9. LENOXIN [Concomitant]
  10. DILTIAZEM HCL [Concomitant]
  11. VITAMINS [Concomitant]
  12. POMEGRANATE [Concomitant]
  13. OMEGA-3 FATTY ACID [Concomitant]
  14. COMPAZINE [Concomitant]
  15. DIGITEK [Concomitant]
  16. CATALYTIC FORMULA 2 [Concomitant]

REACTIONS (8)
  - ATRIAL FLUTTER [None]
  - COUGH [None]
  - DYSPHONIA [None]
  - DYSPNOEA [None]
  - INFLUENZA LIKE ILLNESS [None]
  - MYALGIA [None]
  - PYREXIA [None]
  - WHEEZING [None]
